FAERS Safety Report 11457593 (Version 3)
Quarter: 2015Q3

REPORT INFORMATION
  Report Type: Spontaneous
  Country: US (occurrence: US)
  Receive Date: 20150904
  Receipt Date: 20150929
  Transmission Date: 20151125
  Serious: Yes (Hospitalization, Other)
  Sender: FDA-Public Use
  Company Number: US-SA-2015SA131058

PATIENT
  Age: 38 Year
  Sex: Male
  Weight: 95.25 kg

DRUGS (52)
  1. DIPHENHYDRAMINE. [Concomitant]
     Active Substance: DIPHENHYDRAMINE
     Dosage: DOSE: 50 MG/1 ML
     Dates: start: 20140219, end: 20140221
  2. HYDROCODONE/PARACETAMOL [Concomitant]
     Indication: PAIN
     Route: 048
     Dates: start: 20140311, end: 20140402
  3. MYCOPHENOLIC ACID. [Concomitant]
     Active Substance: MYCOPHENOLIC ACID
     Indication: IMMUNOSUPPRESSION
     Route: 048
     Dates: start: 20141225
  4. BACTRIM [Concomitant]
     Active Substance: SULFAMETHOXAZOLE\TRIMETHOPRIM
     Indication: ANTIBIOTIC PROPHYLAXIS
     Route: 048
     Dates: start: 20140310
  5. AMBIEN [Concomitant]
     Active Substance: ZOLPIDEM TARTRATE
     Route: 048
     Dates: start: 20140402, end: 20140702
  6. CEFAZOLIN [Concomitant]
     Active Substance: CEFAZOLIN
     Dosage: DOSE: 2G/20 ML
     Dates: start: 20140219, end: 20140219
  7. DIPHENHYDRAMINE. [Concomitant]
     Active Substance: DIPHENHYDRAMINE
     Dosage: 25MG/0.5 ML DOSE
     Dates: start: 20140221, end: 20140221
  8. DIPHENHYDRAMINE. [Concomitant]
     Active Substance: DIPHENHYDRAMINE
     Dosage: DOSE: 50 MG/1 ML
     Dates: start: 20140222, end: 20140222
  9. ACETAMINOPHEN. [Concomitant]
     Active Substance: ACETAMINOPHEN
     Dosage: 650 MG PER 2 TAB
     Route: 048
     Dates: start: 20140219, end: 20140222
  10. MYCOPHENOLIC ACID. [Concomitant]
     Active Substance: MYCOPHENOLIC ACID
     Indication: IMMUNOSUPPRESSION
     Route: 048
     Dates: start: 20140221
  11. FABRAZYME [Suspect]
     Active Substance: AGALSIDASE BETA
     Indication: FABRY^S DISEASE
     Dosage: APPROPRIATE DOSE
     Route: 041
  12. METOPROLOL [Concomitant]
     Active Substance: METOPROLOL
     Dosage: 25 MG PER 1 TAB DOSE
     Route: 048
     Dates: start: 20140219, end: 20140219
  13. MYCOPHENOLIC ACID. [Concomitant]
     Active Substance: MYCOPHENOLIC ACID
     Indication: IMMUNOSUPPRESSION
     Route: 048
     Dates: start: 20140310, end: 20141225
  14. BACTRIM [Concomitant]
     Active Substance: SULFAMETHOXAZOLE\TRIMETHOPRIM
     Indication: ANTIBIOTIC PROPHYLAXIS
     Dosage: 400-80 MG
     Route: 048
     Dates: start: 20140222, end: 20140223
  15. NYSTATIN. [Concomitant]
     Active Substance: NYSTATIN
     Indication: ANTIBIOTIC PROPHYLAXIS
     Route: 048
     Dates: start: 20140222, end: 20140223
  16. NYSTATIN. [Concomitant]
     Active Substance: NYSTATIN
     Indication: ANTIBIOTIC PROPHYLAXIS
     Dosage: 500,000 UNITS/ML
     Route: 048
     Dates: start: 20140220, end: 20140222
  17. FAMOTIDINE. [Concomitant]
     Active Substance: FAMOTIDINE
     Route: 048
     Dates: start: 20140222, end: 20140402
  18. FAMOTIDINE. [Concomitant]
     Active Substance: FAMOTIDINE
     Route: 042
     Dates: start: 20140220, end: 20140220
  19. DOCUSATE [Concomitant]
     Active Substance: DOCUSATE
     Route: 048
     Dates: start: 20140310, end: 20140402
  20. DIAZEPAM. [Concomitant]
     Active Substance: DIAZEPAM
     Indication: INSOMNIA
     Dosage: 1/2 OR 1 TABLET: DOSE
     Route: 048
     Dates: start: 20120224, end: 20130710
  21. COLACE [Concomitant]
     Active Substance: DOCUSATE SODIUM
     Dates: end: 20140320
  22. FABRAZYME [Suspect]
     Active Substance: AGALSIDASE BETA
     Indication: FABRY^S DISEASE
     Dosage: DOSE: HALF DOSE
     Route: 041
     Dates: start: 200906
  23. HYDROMORPHONE [Concomitant]
     Active Substance: HYDROMORPHONE
     Dosage: 0.5-1.0 MG: DOSE
     Route: 042
     Dates: start: 20140220, end: 20140222
  24. HYDROCODONE/PARACETAMOL [Concomitant]
     Indication: PAIN
     Route: 048
     Dates: start: 20130710, end: 20140305
  25. PROGRAF [Concomitant]
     Active Substance: TACROLIMUS\TACROLIMUS ANHYDROUS
     Indication: IMMUNOSUPPRESSION
     Route: 048
     Dates: start: 20141225, end: 20150527
  26. FAMOTIDINE. [Concomitant]
     Active Substance: FAMOTIDINE
     Route: 048
     Dates: start: 20140220, end: 20140222
  27. IBUPROFEN. [Concomitant]
     Active Substance: IBUPROFEN
     Indication: PREMEDICATION
  28. POLYMYXIN B/BACITRACIN [Concomitant]
     Dosage: 1 APPLICATION
     Dates: start: 20140221, end: 20140222
  29. NORMAL SALINE [Concomitant]
     Active Substance: SODIUM CHLORIDE
     Route: 042
     Dates: start: 20140220, end: 20140222
  30. TRIMETHOPRIM/SULFAMETHOXAZOLE [Concomitant]
     Route: 048
     Dates: start: 20140220, end: 20140222
  31. CYCLOSPORINE. [Concomitant]
     Active Substance: CYCLOSPORINE
     Route: 048
     Dates: start: 20150527
  32. METHYLPREDNISOLONE. [Concomitant]
     Active Substance: METHYLPREDNISOLONE
     Dosage: 500 MG/4 ML
     Dates: start: 20140219, end: 20140222
  33. TUMS [Concomitant]
     Active Substance: CALCIUM CARBONATE
     Route: 048
     Dates: start: 20130809
  34. FABRAZYME [Suspect]
     Active Substance: AGALSIDASE BETA
     Indication: FABRY^S DISEASE
     Route: 041
     Dates: start: 200406
  35. PREDNISONE. [Concomitant]
     Active Substance: PREDNISONE
     Route: 048
     Dates: start: 20140505, end: 20140702
  36. DOCUSATE [Concomitant]
     Active Substance: DOCUSATE
     Route: 048
     Dates: start: 20140220, end: 20140222
  37. LASIX [Concomitant]
     Active Substance: FUROSEMIDE
     Dosage: 80 MG PER 8 ML: DOSE
     Route: 042
     Dates: start: 20140221, end: 20140221
  38. PERCOCET [Concomitant]
     Active Substance: ACETAMINOPHEN\OXYCODONE HYDROCHLORIDE
     Indication: PAIN
     Dosage: 1-2 TAB: DOSE
     Route: 048
     Dates: start: 20140220, end: 20140222
  39. SODIUM CHLORIDE. [Concomitant]
     Active Substance: SODIUM CHLORIDE
     Route: 042
     Dates: start: 20140219, end: 20140219
  40. ALEMTUZUMAB [Concomitant]
     Active Substance: ALEMTUZUMAB
     Dosage: 30 MG/1 ML
     Dates: start: 20140219, end: 20140222
  41. HYDROCODONE/PARACETAMOL [Concomitant]
     Indication: PAIN
     Route: 048
     Dates: start: 20141104, end: 20141108
  42. PROGRAF [Concomitant]
     Active Substance: TACROLIMUS\TACROLIMUS ANHYDROUS
     Indication: IMMUNOSUPPRESSION
     Route: 048
     Dates: start: 20140222, end: 20141225
  43. PROGRAF [Concomitant]
     Active Substance: TACROLIMUS\TACROLIMUS ANHYDROUS
     Indication: IMMUNOSUPPRESSION
     Route: 048
     Dates: start: 20140220, end: 20140222
  44. SODIUM BICARBONATE. [Concomitant]
     Active Substance: SODIUM BICARBONATE
     Route: 048
     Dates: start: 20140306, end: 20140402
  45. NASONEX [Concomitant]
     Active Substance: MOMETASONE FUROATE
     Dosage: SPRAY
     Route: 045
     Dates: start: 20100227, end: 20110106
  46. LABETALOL [Concomitant]
     Active Substance: LABETALOL\LABETALOL HYDROCHLORIDE
     Route: 048
     Dates: start: 20131112, end: 20140213
  47. CELLCEPT [Concomitant]
     Active Substance: MYCOPHENOLATE MOFETIL\MYCOPHENOLATE MOFETIL HYDROCHLORIDE
     Route: 048
     Dates: start: 20140222, end: 20140310
  48. CAMPATH [Concomitant]
     Active Substance: ALEMTUZUMAB
  49. NYSTATIN. [Concomitant]
     Active Substance: NYSTATIN
     Indication: ANTIBIOTIC PROPHYLAXIS
     Dosage: DOSE: 500,000 UNITS/5ML
     Route: 048
     Dates: start: 20140310, end: 20140402
  50. ERGOCALCIFEROL. [Concomitant]
     Active Substance: ERGOCALCIFEROL
     Dosage: 1 CAPSULE WEEKLY X 4 WEEKS THEN MONTHLY X 5 MONTHS
     Route: 048
     Dates: start: 20140225
  51. FAMOTIDINE. [Concomitant]
     Active Substance: FAMOTIDINE
     Route: 048
     Dates: start: 20140219, end: 20140219
  52. BIAXIN [Concomitant]
     Active Substance: CLARITHROMYCIN
     Dosage: 1000 MG PER 2 TABLETS
     Route: 048
     Dates: start: 20100227, end: 20110106

REACTIONS (81)
  - Albuminuria [Recovered/Resolved]
  - Renal failure [Unknown]
  - Haematocrit decreased [Unknown]
  - Angiokeratoma [Not Recovered/Not Resolved]
  - Platelet count decreased [Unknown]
  - Blood urea increased [Unknown]
  - Blood glucose increased [Unknown]
  - Nausea [Recovering/Resolving]
  - Hypoaesthesia [Unknown]
  - Drug intolerance [Unknown]
  - Back pain [Unknown]
  - Hyperparathyroidism secondary [Unknown]
  - Myopia [Unknown]
  - Temperature intolerance [Unknown]
  - Azotaemia [Unknown]
  - Anaemia [Unknown]
  - Glomerular filtration rate decreased [Unknown]
  - Mononeuritis [Unknown]
  - Thirst [Unknown]
  - White blood cells urine positive [Unknown]
  - Irritable bowel syndrome [Unknown]
  - Vitamin D deficiency [Unknown]
  - Wound [Recovered/Resolved]
  - Impaired healing [Recovered/Resolved]
  - Arthralgia [Unknown]
  - Creatinine urine increased [Unknown]
  - Red blood cell count decreased [Not Recovered/Not Resolved]
  - Herpes zoster [Unknown]
  - Blood pressure abnormal [Unknown]
  - Haemoglobin decreased [Unknown]
  - Renal osteodystrophy [Unknown]
  - Cytomegalovirus viraemia [Recovered/Resolved]
  - Eye pruritus [Unknown]
  - Diarrhoea [Unknown]
  - Oxygen saturation decreased [Unknown]
  - End-tidal CO2 decreased [Unknown]
  - Pulmonary vascular disorder [Unknown]
  - Dizziness [Unknown]
  - Influenza [Unknown]
  - Inguinal hernia repair [Unknown]
  - Peritoneal effluent leukocyte count [Unknown]
  - Peritoneal effluent abnormal [Unknown]
  - Dysaesthesia [Unknown]
  - Libido decreased [Not Recovered/Not Resolved]
  - Hyperkalaemia [Unknown]
  - Haemorrhoids [Unknown]
  - Hypertension [Not Recovered/Not Resolved]
  - Fatigue [Unknown]
  - Haemorrhage [Unknown]
  - Blood calcium decreased [Unknown]
  - Urine albumin/creatinine ratio increased [Unknown]
  - Blood testosterone decreased [Unknown]
  - Peritoneal effluent erythrocyte count increased [Unknown]
  - Haemoglobin urine present [Unknown]
  - Insomnia [Not Recovered/Not Resolved]
  - Abdominal distension [Unknown]
  - Tinea infection [Unknown]
  - Erectile dysfunction [Not Recovered/Not Resolved]
  - Weight decreased [Unknown]
  - Dyspepsia [Unknown]
  - Proteinuria [Unknown]
  - Pain [Unknown]
  - Neutrophil count increased [Unknown]
  - Alanine aminotransferase decreased [Unknown]
  - Snoring [Unknown]
  - Hyperlipidaemia [Unknown]
  - Hyperphosphataemia [Unknown]
  - Lactose intolerance [Unknown]
  - Myalgia [Not Recovered/Not Resolved]
  - Headache [Unknown]
  - Swelling [Recovering/Resolving]
  - Chronic kidney disease [Unknown]
  - Lymphocyte count decreased [Unknown]
  - Blood phosphorus decreased [Unknown]
  - Blood testosterone free decreased [Unknown]
  - Urine leukocyte esterase [Unknown]
  - Neuropathy peripheral [Not Recovered/Not Resolved]
  - Rash [Unknown]
  - Hyperglycaemia [Unknown]
  - Tremor [Unknown]
  - Blood creatinine increased [Unknown]

NARRATIVE: CASE EVENT DATE: 200812
